FAERS Safety Report 5678281-6 (Version None)
Quarter: 2008Q1

REPORT INFORMATION
  Report Type: 
  Country: None (occurrence: None)
  Receive Date: 20080319
  Receipt Date: 20080310
  Transmission Date: 20080703
  Serious: Yes (Other)
  Sender: FDA-Public Use
  Company Number: 2008AP000631

PATIENT
  Age: 33 Year
  Sex: Female

DRUGS (4)
  1. PAROXETINE HCL [Suspect]
     Dosage: 20 MG;QD; 20 MG; PO; QD; 5 ML;ORAL_SUS;PO;QD; 4 MG; PO;QD; 20 MG;PO;QD
     Route: 048
     Dates: start: 19990913
  2. ESCITALOPRAM OXALATE (ESCITALOPRAM OXALATE) [Concomitant]
  3. DIAZEPAM [Concomitant]
  4. ESCITALOPRAM OXALATE [Concomitant]

REACTIONS (14)
  - ABNORMAL DREAMS [None]
  - AGGRESSION [None]
  - AGORAPHOBIA [None]
  - COMMUNICATION DISORDER [None]
  - CONDITION AGGRAVATED [None]
  - INFLUENZA LIKE ILLNESS [None]
  - LIBIDO DECREASED [None]
  - MOOD ALTERED [None]
  - NASOPHARYNGITIS [None]
  - PANIC ATTACK [None]
  - PRURITUS [None]
  - SOMNOLENCE [None]
  - WEIGHT INCREASED [None]
  - WITHDRAWAL SYNDROME [None]
